FAERS Safety Report 7684329-X (Version None)
Quarter: 2011Q3

REPORT INFORMATION
  Report Type: 
  Country: None (occurrence: None)
  Receive Date: 20110815
  Receipt Date: 20110811
  Transmission Date: 20111222
  Serious: Yes (Death, Other)
  Sender: FDA-Public Use
  Company Number: IN-BRISTOL-MYERS SQUIBB COMPANY-15219165

PATIENT
  Age: 52 Year
  Sex: Male

DRUGS (11)
  1. URIMAX [Concomitant]
     Dates: start: 20080204, end: 20100709
  2. FOLVITE [Concomitant]
     Route: 048
     Dates: start: 20100329, end: 20100709
  3. RAMACE [Concomitant]
     Route: 048
     Dates: start: 20100105, end: 20100709
  4. PREDNISOLONE [Suspect]
     Indication: RENAL TRANSPLANT
     Route: 048
     Dates: start: 20100105, end: 20100709
  5. CELLCEPT [Suspect]
     Indication: RENAL TRANSPLANT
     Dates: start: 20100329, end: 20100709
  6. TACROLIMUS [Concomitant]
     Dates: start: 20100426, end: 20100709
  7. METFORMIN HCL [Concomitant]
     Route: 048
     Dates: start: 20090331, end: 20100709
  8. IMDUR [Concomitant]
     Route: 048
     Dates: start: 20070919, end: 20100709
  9. LOSACOR [Concomitant]
     Indication: HYPERTENSION
     Route: 048
     Dates: start: 20090818, end: 20100709
  10. BELATACEPT [Suspect]
     Indication: RENAL TRANSPLANT
     Route: 042
     Dates: start: 20070528, end: 20100426
  11. NOVORAPID [Concomitant]
     Route: 058
     Dates: start: 20081110, end: 20100709

REACTIONS (4)
  - BRADYCARDIA [None]
  - CARDIAC ARREST [None]
  - TUBERCULOSIS [None]
  - SEPSIS [None]
